FAERS Safety Report 5418141-9 (Version None)
Quarter: 2007Q3

REPORT INFORMATION
  Report Type: 
  Country: None (occurrence: None)
  Receive Date: 20070817
  Receipt Date: 20070803
  Transmission Date: 20080115
  Serious: Yes (Other)
  Sender: FDA-Public Use
  Company Number: GB-ELI_LILLY_AND_COMPANY-GB200708001247

PATIENT
  Age: 66 Year
  Sex: Male

DRUGS (4)
  1. FLUOXETINE [Suspect]
     Indication: MAJOR DEPRESSION
     Dosage: 10 MG, DAILY (1/D)
     Route: 048
     Dates: start: 19940101
  2. CHLORDIAZEPOXIDE [Concomitant]
     Indication: GASTROINTESTINAL DISORDER
     Dosage: 5 MG, 4/D
  3. CHLORDIAZEPOXIDE [Concomitant]
     Indication: GENERALISED ANXIETY DISORDER
     Dosage: 10 MG, 2/D
  4. CLONAZEPAM [Concomitant]
     Indication: MOVEMENT DISORDER
     Dosage: 0.5 MG, DAILY (1/D)

REACTIONS (2)
  - ABNORMAL BEHAVIOUR [None]
  - HOMICIDE [None]
